FAERS Safety Report 4381440-6 (Version None)
Quarter: 2004Q2

REPORT INFORMATION
  Report Type: 
  Country: None (occurrence: None)
  Receive Date: 20040617
  Receipt Date: 20040617
  Transmission Date: 20050107
  Serious: Yes (Other)
  Sender: FDA-Public Use
  Company Number: None

PATIENT
  Sex: Male
  Weight: 35.3 kg

DRUGS (1)
  1. DEFEROXAMINE MESYLATE 2 GM/VIAL ABBOTT [Suspect]
     Indication: THALASSAEMIA
     Dosage: 1660 MG 5X WEEK SQ
     Route: 058
     Dates: start: 20040601, end: 20040616

REACTIONS (2)
  - INJECTION SITE PAIN [None]
  - PHARMACEUTICAL PRODUCT COMPLAINT [None]
